FAERS Safety Report 4938394-0 (Version None)
Quarter: 2006Q1

REPORT INFORMATION
  Report Type: 
  Country: None (occurrence: None)
  Receive Date: 20060302
  Receipt Date: 20060215
  Transmission Date: 20060701
  Serious: Yes (Life-Threatening)
  Sender: FDA-Public Use
  Company Number: MK200601-0320-1

PATIENT
  Age: 63 Year
  Sex: Male

DRUGS (1)
  1. OPTIRAY 320 [Suspect]
     Indication: ABDOMEN SCAN
     Dosage: 100 ML, ONCE
     Dates: start: 20060118, end: 20060118

REACTIONS (6)
  - FLUSHING [None]
  - HYPOAESTHESIA [None]
  - INFUSION RELATED REACTION [None]
  - NAUSEA [None]
  - SENSORY DISTURBANCE [None]
  - SHOCK [None]
